FAERS Safety Report 4362384-2 (Version None)
Quarter: 2004Q2

REPORT INFORMATION
  Report Type: 
  Country: None (occurrence: None)
  Receive Date: 20040518
  Receipt Date: 20040504
  Transmission Date: 20050107
  Serious: No
  Sender: FDA-Public Use
  Company Number: CERZ-10567

PATIENT
  Age: 67 Year
  Sex: Female
  Weight: 73.0291 kg

DRUGS (3)
  1. CEREZYME [Suspect]
     Indication: GAUCHER'S DISEASE
     Dosage: 3000 UNITS Q2WKS IV
     Route: 042
     Dates: start: 20040504, end: 20040504
  2. CEREZYME [Suspect]
  3. CEREZYME [Suspect]
     Indication: GAUCHER'S DISEASE
     Dosage: 3000 UNITS Q2WKS IV
     Route: 042
     Dates: start: 19991101, end: 20040109

REACTIONS (11)
  - ANGIONEUROTIC OEDEMA [None]
  - CHEST DISCOMFORT [None]
  - EYE PRURITUS [None]
  - EYE SWELLING [None]
  - FLUSHING [None]
  - LACRIMATION INCREASED [None]
  - PRURITUS [None]
  - RHINORRHOEA [None]
  - SNEEZING [None]
  - SWELLING FACE [None]
  - THROAT IRRITATION [None]
